FAERS Safety Report 4538288-9 (Version None)
Quarter: 2004Q4

REPORT INFORMATION
  Report Type: 
  Country: None (occurrence: None)
  Receive Date: 20041223
  Receipt Date: 20041223
  Transmission Date: 20050328
  Serious: Yes (Other)
  Sender: FDA-Public Use
  Company Number: None

PATIENT
  Sex: Female
  Weight: 48.5 kg

DRUGS (2)
  1. DOCETAXEL 45 MG [Suspect]
     Indication: ANGIOSARCOMA
     Dosage: 45 MG IV ON 11/11
     Route: 042
     Dates: start: 20041111
  2. DOCETAXEL 34 MG [Suspect]
     Dosage: 34 MG IV ON 11/26
     Route: 042
     Dates: start: 20041126

REACTIONS (3)
  - FATIGUE [None]
  - HYPONATRAEMIA [None]
  - STOMATITIS [None]
